FAERS Safety Report 5070953-X (Version None)
Quarter: 2006Q3

REPORT INFORMATION
  Report Type: 
  Country: None (occurrence: None)
  Receive Date: 20060804
  Receipt Date: 20060417
  Transmission Date: 20061208
  Serious: Yes (Hospitalization)
  Sender: FDA-Public Use
  Company Number: JP-AVENTIS-200611266JP

PATIENT
  Age: 60 Year
  Sex: Male

DRUGS (10)
  1. LASIX [Suspect]
     Indication: GENERALISED OEDEMA
     Route: 048
     Dates: start: 20060328, end: 20060413
  2. DANTRIUM [Concomitant]
     Route: 048
  3. SELBEX [Concomitant]
     Route: 048
  4. LIORESAL [Concomitant]
     Route: 048
  5. GASTER [Concomitant]
     Route: 048
  6. FOIPAN [Concomitant]
     Route: 048
  7. MUCOSOLVAN [Concomitant]
     Dosage: DOSE: 3 TABLETS/DAY
     Route: 048
  8. MUCODYNE [Concomitant]
     Dosage: DOSE: 3 TABLETS/DAY
     Route: 048
  9. SEROQUEL [Concomitant]
     Dosage: DOSE: 5 TABLES/DAY
     Route: 048
  10. LASIX [Concomitant]
     Indication: PLEURAL EFFUSION
     Route: 051
     Dates: start: 20060302, end: 20060306

REACTIONS (2)
  - HYPOTHYROIDISM [None]
  - THROMBOCYTOPENIA [None]
